FAERS Safety Report 14203521 (Version 3)
Quarter: 2019Q4

REPORT INFORMATION
  Report Type: Spontaneous
  Country: US (occurrence: US)
  Receive Date: 20171120
  Receipt Date: 20191206
  Transmission Date: 20200122
  Serious: Yes (Other)
  Sender: FDA-Public Use
  Company Number: US-UCBSA-2017030295

PATIENT
  Age: 63 Year
  Sex: Female
  Weight: 68.4 kg

DRUGS (11)
  1. ZONISAMIDE. [Concomitant]
     Active Substance: ZONISAMIDE
     Indication: SEIZURE
     Dosage: 100 MG IN THE MORNING AND 200 MG AT PM, 2X/DAY (BID)
     Route: 048
  2. FYCOMPA [Concomitant]
     Active Substance: PERAMPANEL
     Indication: SEIZURE
     Dosage: 4 MG, ONCE DAILY (QD)
  3. DIVALPROEX SODIUM. [Concomitant]
     Active Substance: DIVALPROEX SODIUM
     Indication: PRODUCT USED FOR UNKNOWN INDICATION
     Route: 048
  4. KEPPRA XR [Suspect]
     Active Substance: LEVETIRACETAM
     Indication: SEIZURE
     Dosage: UNK
     Route: 048
  5. KEPPRA XR [Suspect]
     Active Substance: LEVETIRACETAM
     Dosage: INCREASING THE DOSAGE
     Route: 048
     Dates: end: 201702
  6. BRIVIACT [Suspect]
     Active Substance: BRIVARACETAM
     Dosage: 50 MG, 2X/DAY (BID)
     Route: 048
     Dates: start: 2017, end: 20171102
  7. BRIVIACT [Suspect]
     Active Substance: BRIVARACETAM
     Dosage: 200 MG, 2X/DAY (BID)
     Dates: start: 20170718, end: 2017
  8. BRIVIACT [Suspect]
     Active Substance: BRIVARACETAM
     Dosage: UNK
     Dates: start: 201704, end: 2017
  9. ESLICARBAZEPINE [Concomitant]
     Active Substance: ESLICARBAZEPINE
     Indication: SEIZURE
     Dosage: UNK
     Route: 048
  10. DEPAKOTE [Concomitant]
     Active Substance: DIVALPROEX SODIUM
     Indication: PRODUCT USED FOR UNKNOWN INDICATION
  11. BRIVIACT [Suspect]
     Active Substance: BRIVARACETAM
     Indication: EPILEPSY
     Dosage: 50 MG, 2X/DAY (BID)
     Route: 048
     Dates: start: 201702, end: 2017

REACTIONS (12)
  - Intentional product misuse [Unknown]
  - Feeling abnormal [Not Recovered/Not Resolved]
  - Memory impairment [Recovering/Resolving]
  - Vision blurred [Not Recovered/Not Resolved]
  - Overdose [Unknown]
  - Balance disorder [Not Recovered/Not Resolved]
  - Sedation [Recovering/Resolving]
  - Seizure [Recovered/Resolved]
  - Dysphagia [Recovered/Resolved]
  - Breast cancer [Recovered/Resolved]
  - Somnolence [Recovering/Resolving]
  - Drug ineffective [Unknown]

NARRATIVE: CASE EVENT DATE: 2015
